FAERS Safety Report 21924564 (Version 3)
Quarter: 2023Q4

REPORT INFORMATION
  Report Type: Spontaneous
  Country: JP (occurrence: JP)
  Receive Date: 20230130
  Receipt Date: 20231211
  Transmission Date: 20240110
  Serious: Yes (Hospitalization, Other)
  Sender: FDA-Public Use
  Company Number: JP-CELGENE-JPN-20180802676

PATIENT
  Age: 67 Year
  Sex: Male
  Weight: 57 kg

DRUGS (9)
  1. VIDAZA [Suspect]
     Active Substance: AZACITIDINE
     Indication: Myelodysplastic syndrome
     Dosage: 125 MILLIGRAM? (125 MG/24 HOURS)
     Route: 058
     Dates: start: 20180627, end: 20180703
  2. VIDAZA [Suspect]
     Active Substance: AZACITIDINE
     Dosage: 125 MILLIGRAM? (125 MG/24 HOURS)
     Route: 058
     Dates: start: 20180730
  3. VIDAZA [Suspect]
     Active Substance: AZACITIDINE
     Dosage: 75 MILLIGRAM/SQ. METER ? (75 MG/M2/24 HOURS)
     Route: 058
  4. VIDAZA [Suspect]
     Active Substance: AZACITIDINE
     Dosage: 75 MILLIGRAM/SQ. METER? (75 MG/M2/24 HOURS)
     Route: 058
  5. VIDAZA [Suspect]
     Active Substance: AZACITIDINE
     Dosage: 125 MILLIGRAM/SQ. METER? (125 MG/24 HOURS)
     Route: 058
     Dates: start: 20181009, end: 20181014
  6. VIDAZA [Suspect]
     Active Substance: AZACITIDINE
     Dosage: 125 MILLIGRAM/SQ. METER? (125 MG/24 HOURS)
     Route: 058
     Dates: start: 20190115, end: 20190120
  7. VIDAZA [Suspect]
     Active Substance: AZACITIDINE
     Dosage: 75 MILLIGRAM/SQ. METER? (75 MG/M2/24 HOURS)
     Route: 058
     Dates: start: 201903
  8. VIDAZA [Suspect]
     Active Substance: AZACITIDINE
     Dosage: 75 MILLIGRAM/SQ. METER? (75 MG/M2/24 HOURS)
     Route: 058
  9. VIDAZA [Suspect]
     Active Substance: AZACITIDINE
     Dates: start: 20220929

REACTIONS (9)
  - Hepatic enzyme increased [Recovered/Resolved]
  - Liver function test increased [Recovered/Resolved]
  - Injection site reaction [Recovering/Resolving]
  - Pneumonia [Not Recovered/Not Resolved]
  - Aphasia [Not Recovered/Not Resolved]
  - Cerebral infarction [Recovered/Resolved with Sequelae]
  - Drug ineffective [Unknown]
  - Transformation to acute myeloid leukaemia [Unknown]
  - Blast cell count increased [Unknown]

NARRATIVE: CASE EVENT DATE: 20180627
